FAERS Safety Report 5334726-2 (Version None)
Quarter: 2007Q2

REPORT INFORMATION
  Report Type: 
  Country: None (occurrence: None)
  Receive Date: 20070525
  Receipt Date: 20070517
  Transmission Date: 20071010
  Serious: Yes (Other)
  Sender: FDA-Public Use
  Company Number: US-JNJFOC-20070301684

PATIENT
  Sex: Female
  Weight: 75.75 kg

DRUGS (11)
  1. DURAGESIC-100 [Suspect]
     Indication: PAIN MANAGEMENT
     Route: 062
  2. LANTUS [Concomitant]
     Indication: DIABETES MELLITUS
     Route: 050
  3. ZOCOR [Concomitant]
     Indication: BLOOD CHOLESTEROL
     Route: 048
  4. MIRAPEX [Concomitant]
     Route: 048
  5. COZAAR [Concomitant]
     Route: 048
  6. MAXZIDE [Concomitant]
     Indication: CARDIAC FAILURE CONGESTIVE
     Route: 048
  7. LOTENSIN [Concomitant]
     Route: 048
  8. ZOLOFT [Concomitant]
     Indication: DEPRESSION
     Route: 048
  9. NORCO [Concomitant]
     Indication: PAIN
     Route: 048
  10. PREMARIN [Concomitant]
     Route: 048
  11. XANAX [Concomitant]
     Indication: ANXIETY
     Route: 048

REACTIONS (5)
  - CARDIAC DISORDER [None]
  - DRUG ABUSER [None]
  - HYPERHIDROSIS [None]
  - PAIN [None]
  - PHARMACEUTICAL PRODUCT COMPLAINT [None]
